FAERS Safety Report 8963591 (Version 1)
Quarter: 2012Q4

REPORT INFORMATION
  Report Type: 
  Country: US (occurrence: US)
  Receive Date: 20121214
  Receipt Date: 20121214
  Transmission Date: 20130627
  Serious: No
  Sender: FDA-Public Use
  Company Number: US-009507513-1212USA003137

PATIENT
  Age: 24 None
  Sex: Female

DRUGS (1)
  1. IMPLANON [Suspect]
     Indication: CONTRACEPTION
     Dosage: UNK
     Dates: start: 20090612, end: 20120807

REACTIONS (4)
  - Cellulitis [Recovered/Resolved]
  - Scar [Unknown]
  - Depression [Unknown]
  - Incorrect drug administration duration [Unknown]
